FAERS Safety Report 10884869 (Version 1)
Quarter: 2015Q1

REPORT INFORMATION
  Report Type: Spontaneous
  Country: US (occurrence: None)
  Receive Date: 20150227
  Receipt Date: 20150227
  Transmission Date: 20150721
  Serious: Yes (Hospitalization, Disabling, Other)
  Sender: FDA-Public Use
  Company Number: None

PATIENT
  Age: 26 Year
  Sex: Male
  Weight: 97.07 kg

DRUGS (3)
  1. CIPROFLOXACIN. [Suspect]
     Active Substance: CIPROFLOXACIN
     Indication: PROSTATITIS
     Dates: start: 20150201, end: 20150201
  2. CLINDAMYCIN [Concomitant]
     Active Substance: CLINDAMYCIN\CLINDAMYCIN PHOSPHATE
  3. TRAMADOL [Concomitant]
     Active Substance: TRAMADOL

REACTIONS (4)
  - Pain in extremity [None]
  - Arthralgia [None]
  - Tendon injury [None]
  - Feeling abnormal [None]

NARRATIVE: CASE EVENT DATE: 20150201
